FAERS Safety Report 20735522 (Version 1)
Quarter: 2022Q2

REPORT INFORMATION
  Report Type: Other
  Country: BR (occurrence: None)
  Receive Date: 20220421
  Receipt Date: 20220421
  Transmission Date: 20220721
  Serious: Yes (Death, Hospitalization, Other)
  Sender: FDA-Public Use
  Company Number: BR-Navinta LLC-000261

PATIENT
  Age: 27 Year
  Sex: Male
  Weight: 140 kg

DRUGS (6)
  1. REMIFENTANIL [Suspect]
     Active Substance: REMIFENTANIL
     Indication: Induction of anaesthesia
  2. PROPOFOL [Suspect]
     Active Substance: PROPOFOL
     Indication: Induction of anaesthesia
  3. ROCURONIUM [Suspect]
     Active Substance: ROCURONIUM BROMIDE
     Indication: Induction of anaesthesia
  4. SUCCINYLCHOLINE [Suspect]
     Active Substance: SUCCINYLCHOLINE
     Indication: Induction of anaesthesia
  5. ISOFLURANE [Suspect]
     Active Substance: ISOFLURANE
     Indication: Anaesthesia
  6. METHYLPREDNISOLONE [Concomitant]
     Active Substance: METHYLPREDNISOLONE
     Indication: Product used for unknown indication
     Dosage: 500 MG HR

REACTIONS (9)
  - Cardio-respiratory arrest [Fatal]
  - Hypotension [Not Recovered/Not Resolved]
  - Supraventricular tachycardia [Recovering/Resolving]
  - Metabolic acidosis [Unknown]
  - Respiratory acidosis [Unknown]
  - Condition aggravated [Unknown]
  - Hyperkalaemia [Unknown]
  - Neuromuscular blockade [Unknown]
  - Bradycardia [Unknown]
